FAERS Safety Report 4716014-8 (Version None)
Quarter: 2005Q3

REPORT INFORMATION
  Report Type: 
  Country: None (occurrence: None)
  Receive Date: 20050718
  Receipt Date: 20050708
  Transmission Date: 20060218
  Serious: Yes (Hospitalization)
  Sender: FDA-Public Use
  Company Number: FR-GLAXOSMITHKLINE-B0387721A

PATIENT
  Age: 75 Year
  Sex: Female
  Weight: 66 kg

DRUGS (4)
  1. AUGMENTIN '125' [Suspect]
     Indication: BRONCHITIS
     Route: 065
     Dates: start: 20050410, end: 20050412
  2. AMOXICILLIN [Suspect]
     Indication: BRONCHITIS
     Route: 065
     Dates: start: 20050410, end: 20050412
  3. ELISOR [Concomitant]
     Route: 065
  4. ALDALIX [Concomitant]
     Route: 065

REACTIONS (10)
  - ANTINEUTROPHIL CYTOPLASMIC ANTIBODY POSITIVE [None]
  - BLOOD CREATININE INCREASED [None]
  - DRUG HYPERSENSITIVITY [None]
  - NEPHROPATHY [None]
  - PETECHIAE [None]
  - PULMONARY NECROSIS [None]
  - PURPURA [None]
  - RENAL FAILURE ACUTE [None]
  - URTICARIA [None]
  - VASCULITIS [None]
